FAERS Safety Report 9605202 (Version 1)
Quarter: 2013Q4

REPORT INFORMATION
  Report Type: Spontaneous
  Country: US (occurrence: US)
  Receive Date: 20131008
  Receipt Date: 20131008
  Transmission Date: 20140711
  Serious: Yes (Other)
  Sender: FDA-Public Use
  Company Number: US-BAYER-2013-118163

PATIENT
  Age: 19 Year
  Sex: Female

DRUGS (1)
  1. YAZ [Suspect]
     Dosage: UNK
     Dates: start: 2008

REACTIONS (10)
  - Cholecystitis acute [None]
  - Urinary tract infection [None]
  - Biliary dilatation [None]
  - Bile duct stone [None]
  - Scar [None]
  - Deformity [None]
  - Pain [None]
  - Emotional distress [None]
  - Anxiety [None]
  - Psychogenic pain disorder [None]
